FAERS Safety Report 9263911 (Version 1)
Quarter: 2013Q2

REPORT INFORMATION
  Report Type: Report from Study
  Country: CA (occurrence: CA)
  Receive Date: 20130430
  Receipt Date: 20130506
  Transmission Date: 20140414
  Serious: Yes (Other)
  Sender: FDA-Public Use
  Company Number: CA-PFIZER INC-2013120627

PATIENT
  Age: 80 Year
  Sex: Male
  Weight: 84.3 kg

DRUGS (18)
  1. SPIRONOLACTONE [Suspect]
     Dosage: 1X/DAY
     Dates: start: 20121031, end: 20121226
  2. SPIRONOLACTONE [Suspect]
     Dosage: UNK
     Dates: start: 20130220, end: 20130327
  3. PERINDOPRIL [Concomitant]
     Indication: CARDIAC FAILURE CONGESTIVE
     Dosage: 4 MG, UNK
     Route: 048
     Dates: end: 20121107
  4. PERINDOPRIL [Concomitant]
     Dosage: 2 MG, UNK
     Route: 048
     Dates: start: 20121108
  5. HYDRODIURIL [Concomitant]
     Indication: CARDIAC FAILURE CONGESTIVE
     Dosage: 14.28 MG, 2X/WEEK
     Route: 048
     Dates: start: 20121011, end: 20130212
  6. COLCHICINE [Concomitant]
     Indication: CARDIAC FAILURE CONGESTIVE
     Dosage: 1/2 OF 0.6 MG TABLET
     Route: 048
     Dates: start: 20120530, end: 20121011
  7. COLCHICINE [Concomitant]
     Dosage: 0.6 MG EVERY 3 DAYS
     Route: 048
     Dates: start: 20130203
  8. LASIX [Concomitant]
     Indication: CARDIAC FAILURE
     Dosage: 100 MG, UNK
     Route: 048
     Dates: start: 20120502, end: 20130220
  9. LASIX [Concomitant]
     Dosage: 80 MG, UNK
     Route: 048
     Dates: start: 20130220
  10. FLAGYL [Concomitant]
     Indication: COLITIS
     Dosage: 500 MG, UNK
     Route: 048
     Dates: start: 20130131, end: 20130204
  11. CARVEDILOL [Concomitant]
     Dosage: 50 MG, UNK
     Route: 048
  12. DIGOXIN [Concomitant]
     Dosage: 62.5 UG, UNK
     Route: 048
  13. AMIODARONE [Concomitant]
     Dosage: 200 MG, UNK
     Route: 048
  14. ATORVASTATIN [Concomitant]
     Dosage: UNK
     Route: 048
  15. COUMADIN [Concomitant]
     Dosage: UNK
     Route: 048
  16. ASAPHEN [Concomitant]
     Dosage: 80 MG, UNK
     Route: 048
  17. PANTOLOC [Concomitant]
     Dosage: 40 MG, 1X/DAY
     Route: 048
  18. DOCUSATE SODIUM [Concomitant]
     Indication: CONSTIPATION
     Dosage: 1 DF,  TWICE A DAY AS NEEDED
     Route: 048

REACTIONS (1)
  - Gynaecomastia [Not Recovered/Not Resolved]
